FAERS Safety Report 21884877 (Version 3)
Quarter: 2023Q1

REPORT INFORMATION
  Report Type: Spontaneous
  Country: JP (occurrence: JP)
  Receive Date: 20230119
  Receipt Date: 20230206
  Transmission Date: 20230417
  Serious: Yes (Other)
  Sender: FDA-Public Use
  Company Number: JP-PFIZER INC-PV202300010654

PATIENT
  Age: 82 Year
  Sex: Female
  Weight: 41.7 kg

DRUGS (13)
  1. IBRANCE [Suspect]
     Active Substance: PALBOCICLIB
     Indication: Breast cancer recurrent
     Dosage: 125 MG, CYCLIC (125 MG X 1 TABLET, CYCLE OF 3 WEEKS ON AND 1 WEEK OFF)
     Route: 048
     Dates: start: 20211215, end: 20211228
  2. IBRANCE [Suspect]
     Active Substance: PALBOCICLIB
     Dosage: 2WEEKS ON AND 2 WEEKS OFF
     Dates: start: 2021
  3. IBRANCE [Suspect]
     Active Substance: PALBOCICLIB
     Dosage: 100 MG, CYCLIC (25 MG X 4 TABLETS, CYCLE OF 3 WEEKS ON AND 1 WEEK OFF)
     Route: 048
     Dates: start: 20220112, end: 20220125
  4. IBRANCE [Suspect]
     Active Substance: PALBOCICLIB
     Dosage: 2WEEKS ON AND 2 WEEKS OFF
  5. IBRANCE [Suspect]
     Active Substance: PALBOCICLIB
     Dosage: 75 MG, CYCLIC(25 MG X 3 TABLETS, CYCLE OF 3 WEEKS ON AND 1 WEEK OFF)
     Route: 048
     Dates: start: 20220209, end: 20220222
  6. IBRANCE [Suspect]
     Active Substance: PALBOCICLIB
     Dosage: 2WEEKS ON AND 2 WEEKS
  7. IBRANCE [Suspect]
     Active Substance: PALBOCICLIB
     Dosage: 75 MG, CYCLIC (25 X 3 TABLETS, CYCLE OF 2 WEEKS ON AND 2 WEEKS OFF)
     Route: 048
     Dates: start: 20220308, end: 20220321
  8. IBRANCE [Suspect]
     Active Substance: PALBOCICLIB
     Dosage: 75 MG, 1X/DAY
     Route: 048
     Dates: start: 20220407, end: 20220419
  9. IBRANCE [Suspect]
     Active Substance: PALBOCICLIB
     Dosage: 75 MG, CYCLIC ( WEEKS ON AND 2 WEEKS OFF)
     Route: 048
     Dates: start: 202205, end: 202212
  10. IBRANCE [Suspect]
     Active Substance: PALBOCICLIB
     Dosage: 75 MG, CYCLIC
     Route: 048
     Dates: start: 20221222, end: 20230104
  11. IBRANCE [Suspect]
     Active Substance: PALBOCICLIB
     Dosage: 75 MG, CYCLIC (25 X 3 TABLETS, CYCLE OF 2 WEEKS ON AND 2 WEEKS OFF)
     Dates: start: 20230114, end: 202301
  12. ANASTROZOLE [Concomitant]
     Active Substance: ANASTROZOLE
     Dosage: 1 MG, 1X/DAY
     Route: 048
     Dates: start: 20221215, end: 20230114
  13. DENOSUMAB [Concomitant]
     Active Substance: DENOSUMAB
     Dosage: UNK
     Route: 058

REACTIONS (4)
  - Renal impairment [Unknown]
  - Neutrophil count decreased [Unknown]
  - Off label use [Unknown]
  - Product use issue [Unknown]

NARRATIVE: CASE EVENT DATE: 20211228
